FAERS Safety Report 8478900-5 (Version None)
Quarter: 2012Q2

REPORT INFORMATION
  Report Type: 
  Country: None (occurrence: None)
  Receive Date: 20120629
  Receipt Date: 20120622
  Transmission Date: 20120825
  Serious: Yes (Other)
  Sender: FDA-Public Use
  Company Number: FR-ROCHE-1074728

PATIENT
  Age: 54 Year
  Sex: Female

DRUGS (6)
  1. BONIVA [Suspect]
     Dates: start: 20120430, end: 20120430
  2. CYMBALTA [Concomitant]
  3. OMEPRAZOLE [Concomitant]
  4. BONIVA [Suspect]
     Indication: OSTEOPOROSIS
     Route: 048
     Dates: end: 20111201
  5. OXAZEPAM [Concomitant]
  6. TRAMADOL HCL [Concomitant]

REACTIONS (9)
  - GINGIVAL BLEEDING [None]
  - GINGIVAL RECESSION [None]
  - ABDOMINAL DISCOMFORT [None]
  - GINGIVAL DISORDER [None]
  - LOOSE TOOTH [None]
  - HEADACHE [None]
  - DIPLEGIA [None]
  - DENTAL CARIES [None]
  - BONE PAIN [None]
